FAERS Safety Report 11836743 (Version 1)
Quarter: 2015Q4

REPORT INFORMATION
  Report Type: Spontaneous
  Country: US (occurrence: US)
  Receive Date: 20151215
  Receipt Date: 20151215
  Transmission Date: 20160305
  Serious: No
  Sender: FDA-Public Use
  Company Number: US-GE HEALTHCARE MEDICAL DIAGNOSTICS-OMPQ-PR-1510S-2469

PATIENT
  Age: 82 Year
  Sex: Female

DRUGS (2)
  1. OMNIPAQUE [Suspect]
     Active Substance: IOHEXOL
     Indication: DIAGNOSTIC PROCEDURE
  2. OMNIPAQUE [Suspect]
     Active Substance: IOHEXOL
     Indication: HAEMATOMA
     Route: 042
     Dates: start: 20151007, end: 20151007

REACTIONS (2)
  - Blood pressure increased [Recovered/Resolved]
  - Wheezing [Recovered/Resolved]

NARRATIVE: CASE EVENT DATE: 20151007
